FAERS Safety Report 15855089 (Version 2)
Quarter: 2019Q1

REPORT INFORMATION
  Report Type: Spontaneous
  Country: FR (occurrence: FR)
  Receive Date: 20190122
  Receipt Date: 20190301
  Transmission Date: 20190417
  Serious: Yes (Other)
  Sender: FDA-Public Use
  Company Number: FR-009507513-1901FRA007076

PATIENT
  Age: 71 Year
  Sex: Female
  Weight: 61 kg

DRUGS (6)
  1. CUBICIN [Suspect]
     Active Substance: DAPTOMYCIN
     Indication: PRODUCT USED FOR UNKNOWN INDICATION
     Route: 051
     Dates: start: 20181205, end: 20181221
  2. ISENTRESS [Concomitant]
     Active Substance: RALTEGRAVIR POTASSIUM
  3. LEVOTHYROX [Concomitant]
     Active Substance: LEVOTHYROXINE
  4. ZAVICEFTA [Suspect]
     Active Substance: AVIBACTAM SODIUM\CEFTAZIDIME
     Indication: PRODUCT USED FOR UNKNOWN INDICATION
     Route: 051
     Dates: start: 20181204, end: 20181215
  5. PANTOPRAZOLE [Concomitant]
     Active Substance: PANTOPRAZOLE
  6. DIFFU-K [Suspect]
     Active Substance: POTASSIUM CHLORIDE
     Indication: PRODUCT USED FOR UNKNOWN INDICATION
     Route: 048

REACTIONS (1)
  - Dermatitis exfoliative generalised [Recovering/Resolving]

NARRATIVE: CASE EVENT DATE: 20181212
